APPROVED DRUG PRODUCT: PROGESTERONE
Active Ingredient: PROGESTERONE
Strength: 100MG
Dosage Form/Route: CAPSULE;ORAL
Application: A208801 | Product #001 | TE Code: AB
Applicant: DR REDDYS LABORATORIES INC
Approved: Feb 28, 2017 | RLD: No | RS: No | Type: RX